FAERS Safety Report 7601953-0 (Version None)
Quarter: 2011Q3

REPORT INFORMATION
  Report Type: 
  Country: None (occurrence: None)
  Receive Date: 20110711
  Receipt Date: 20110704
  Transmission Date: 20111222
  Serious: Yes (Other)
  Sender: FDA-Public Use
  Company Number: BR-PFIZER INC-2010107586

PATIENT
  Age: 27 Year
  Sex: Female
  Weight: 55 kg

DRUGS (2)
  1. DEPO-PROVERA [Suspect]
     Indication: MENSTRUAL DISCOMFORT
  2. DEPO-PROVERA [Suspect]
     Indication: CONTRACEPTION
     Dosage: 50 MG, MONTHLY
     Route: 030
     Dates: start: 20100317, end: 20110301

REACTIONS (5)
  - MENORRHAGIA [None]
  - DIZZINESS [None]
  - INCORRECT DOSE ADMINISTERED [None]
  - AMENORRHOEA [None]
  - UTERINE DISORDER [None]
